FAERS Safety Report 8641107 (Version 3)
Quarter: 2012Q4

REPORT INFORMATION
  Report Type: 
  Country: US (occurrence: US)
  Receive Date: 20120628
  Receipt Date: 20121008
  Transmission Date: 20130627
  Serious: Yes (Other)
  Sender: FDA-Public Use
  Company Number: US-PFIZER INC-2005099266

PATIENT
  Age: 53 Year
  Sex: Female
  Weight: 44.91 kg

DRUGS (6)
  1. ZOLOFT [Suspect]
     Indication: POST-TRAUMATIC STRESS DISORDER
     Dosage: 100 mg daily
     Route: 048
     Dates: start: 200312
  2. ZOLOFT [Suspect]
     Indication: DEPRESSION
  3. ALLEGRA-D [Concomitant]
     Dosage: 60 mg, 2x/day
     Route: 048
  4. IBUPROFEN [Concomitant]
     Dosage: UNK
     Route: 048
  5. SUDAFED [Concomitant]
     Dosage: UNK
     Route: 048
  6. FLONASE [Concomitant]
     Dosage: UNK
     Route: 045

REACTIONS (6)
  - Neoplasm malignant [Unknown]
  - Thyroid disorder [Unknown]
  - Libido decreased [Not Recovered/Not Resolved]
  - Disability [Not Recovered/Not Resolved]
  - Injury [Unknown]
  - Blood pressure abnormal [Not Recovered/Not Resolved]
